FAERS Safety Report 11105462 (Version 1)
Quarter: 2015Q2

REPORT INFORMATION
  Report Type: Report from Study
  Country: CA (occurrence: CA)
  Receive Date: 20150512
  Receipt Date: 20150512
  Transmission Date: 20150821
  Serious: Yes (Hospitalization)
  Sender: FDA-Public Use
  Company Number: CA-PFIZER INC-2015156705

PATIENT
  Age: 72 Year
  Sex: Male
  Weight: 78 kg

DRUGS (4)
  1. FUROSEMIDE. [Concomitant]
     Active Substance: FUROSEMIDE
     Dosage: UNK
  2. AMIODARONE HCL [Suspect]
     Active Substance: AMIODARONE HYDROCHLORIDE
     Dosage: UNK
     Route: 065
  3. TOLOXIN [Concomitant]
     Active Substance: DIGOXIN
  4. CARVEDILOL. [Concomitant]
     Active Substance: CARVEDILOL
     Dosage: UNK

REACTIONS (15)
  - Cardiac failure [Recovered/Resolved]
  - Hepatitis B [Recovered/Resolved]
  - Ejection fraction abnormal [Recovered/Resolved]
  - Blood bilirubin increased [Recovered/Resolved]
  - Hyperthyroidism [Recovered/Resolved]
  - Alanine aminotransferase increased [Recovered/Resolved]
  - Blood potassium decreased [Recovered/Resolved]
  - Hepatic cirrhosis [Recovered/Resolved]
  - Thyroxine free increased [Recovered/Resolved]
  - Tri-iodothyronine increased [Recovered/Resolved]
  - Pulmonary oedema [Recovered/Resolved]
  - Dyspnoea [Recovered/Resolved]
  - Toxicity to various agents [Recovered/Resolved]
  - Pulmonary congestion [Recovered/Resolved]
  - Pulmonary toxicity [Recovered/Resolved]
